FAERS Safety Report 18643183 (Version 2)
Quarter: 2020Q4

REPORT INFORMATION
  Report Type: Spontaneous
  Country: FR (occurrence: FR)
  Receive Date: 20201221
  Receipt Date: 20201231
  Transmission Date: 20210114
  Serious: Yes (Hospitalization, Other)
  Sender: FDA-Public Use
  Company Number: FR-PFIZER INC-2020501841

PATIENT
  Age: 34 Year
  Sex: Male
  Weight: 90 kg

DRUGS (10)
  1. NIVOLUMAB [Suspect]
     Active Substance: NIVOLUMAB
     Dosage: UNK, SECOND CURE
     Route: 065
     Dates: start: 20201029
  2. CALCIDOSE [CALCIUM CARBONATE] [Concomitant]
     Active Substance: CALCIUM CARBONATE
     Indication: HEPATITIS
     Dosage: UNK
     Route: 065
     Dates: start: 20201112
  3. NIVOLUMAB [Suspect]
     Active Substance: NIVOLUMAB
  4. BRAFTOVI [Suspect]
     Active Substance: ENCORAFENIB
     Indication: METASTATIC MALIGNANT MELANOMA
     Dosage: 450 MG, DAILY
     Route: 065
     Dates: start: 20201123
  5. PANTOPRAZOLE [Concomitant]
     Active Substance: PANTOPRAZOLE
     Dosage: UNK
     Route: 065
  6. CORTANCYL [Concomitant]
     Active Substance: PREDNISONE
     Dosage: 80 MG, DAILY
     Route: 065
  7. DIFFU K [Concomitant]
     Active Substance: POTASSIUM CHLORIDE
     Indication: HEPATITIS
     Dosage: UNK
     Route: 065
     Dates: start: 20201112
  8. IPILIMUMAB [Suspect]
     Active Substance: IPILIMUMAB
     Indication: METASTATIC MALIGNANT MELANOMA
     Dosage: UNK, FIRST CURE
     Route: 065
     Dates: start: 20201006
  9. MEKTOVI [Suspect]
     Active Substance: BINIMETINIB
     Indication: METASTATIC MALIGNANT MELANOMA
     Dosage: 90 MG, DAILY
     Route: 065
     Dates: start: 20201123
  10. IPILIMUMAB [Suspect]
     Active Substance: IPILIMUMAB

REACTIONS (3)
  - Renal failure [Not Recovered/Not Resolved]
  - Hepatocellular injury [Recovering/Resolving]
  - Condition aggravated [Recovering/Resolving]

NARRATIVE: CASE EVENT DATE: 20201211
